FAERS Safety Report 8032605 (Version 9)
Quarter: 2012Q4

REPORT INFORMATION
  Report Type: Report from Study
  Country: BE (occurrence: BE)
  Receive Date: 20110713
  Receipt Date: 20121217
  Transmission Date: 20130627
  Serious: Yes (Life-Threatening, Hospitalization, Other)
  Sender: FDA-Public Use
  Company Number: BE-ASTRAZENECA-2011SE39829

PATIENT
  Age: 11065 Day
  Sex: Female

DRUGS (21)
  1. VANDETANIB [Suspect]
     Indication: THYROID CANCER
     Route: 048
     Dates: start: 20110521, end: 20110527
  2. VANDETANIB [Suspect]
     Indication: THYROID CANCER
     Route: 048
     Dates: start: 20110616, end: 20110616
  3. VANDETANIB [Suspect]
     Indication: THYROID CANCER
     Dosage: DOSE REDUCED
     Route: 048
     Dates: start: 20110617, end: 20110701
  4. CALCIUM [Concomitant]
     Indication: MINERAL SUPPLEMENTATION
     Route: 048
     Dates: start: 20110210
  5. ELTHYRONE [Concomitant]
     Indication: THYROID THERAPY
     Route: 048
     Dates: start: 20110210
  6. LORAMET [Concomitant]
     Indication: SLEEP DISORDER THERAPY
     Route: 048
     Dates: start: 20110210
  7. PANTOMED [Concomitant]
     Indication: PROPHYLAXIS AGAINST GASTROINTESTINAL ULCER
     Route: 048
  8. ALPHA LEO [Concomitant]
     Indication: MINERAL SUPPLEMENTATION
     Route: 048
     Dates: start: 20110210
  9. TEMESTA [Concomitant]
     Indication: SLEEP DISORDER THERAPY
     Route: 048
     Dates: start: 20110211
  10. CLOSAN [Concomitant]
     Indication: ANXIETY
     Route: 048
     Dates: start: 20110210
  11. TARGINACT [Concomitant]
     Indication: BACK PAIN
     Route: 048
     Dates: start: 20110210
  12. FORLAX [Concomitant]
     Indication: CONSTIPATION PROPHYLAXIS
     Dosage: AS REQUIRED
     Route: 048
     Dates: start: 20110210
  13. MEDROL [Concomitant]
     Indication: BACK PAIN
     Route: 048
     Dates: start: 20110307, end: 20110525
  14. VOLTAREN [Concomitant]
     Indication: BACK PAIN
     Route: 048
     Dates: start: 20110307
  15. LAXOBERON [Concomitant]
     Indication: CONSTIPATION PROPHYLAXIS
     Dosage: AS REQUIRED
     Route: 048
  16. LITICAN [Concomitant]
     Indication: PROPHYLAXIS OF NAUSEA AND VOMITING
     Route: 048
  17. REDOMEX [Concomitant]
     Indication: BACK PAIN
     Route: 048
     Dates: start: 20110313
  18. OXYNORM [Concomitant]
     Indication: BACK PAIN
     Route: 048
     Dates: start: 20110419
  19. ZOMETA [Concomitant]
     Indication: METASTASES TO BONE
     Route: 042
     Dates: start: 20110419
  20. IMODIUM [Concomitant]
     Indication: DIARRHOEA
     Dosage: AS REQUIRED
     Route: 048
     Dates: start: 20110301
  21. MSCONTIN [Concomitant]
     Indication: BACK PAIN
     Dosage: AS REQUIRED
     Route: 048
     Dates: start: 20110520

REACTIONS (2)
  - Intestinal obstruction [Recovered/Resolved]
  - Large intestine perforation [Recovered/Resolved]
